FAERS Safety Report 4448889-4 (Version None)
Quarter: 2004Q3

REPORT INFORMATION
  Report Type: 
  Country: None (occurrence: None)
  Receive Date: 20040909
  Receipt Date: 20040902
  Transmission Date: 20050211
  Serious: Yes (Hospitalization)
  Sender: FDA-Public Use
  Company Number: S04-USA-05944-01

PATIENT
  Sex: Male

DRUGS (11)
  1. LEXAPRO [Suspect]
     Dosage: 15 MG QD PO
     Route: 048
     Dates: start: 20040824
  2. LEXAPRO [Suspect]
     Dates: end: 20040823
  3. WARFARIN SODIUM [Suspect]
     Dosage: 5 MG QD PO
     Route: 048
  4. BETHANECOL [Concomitant]
  5. CLOTRIMAZOLE [Concomitant]
  6. LEVOFLOXACIN [Concomitant]
  7. PREDNISONE [Concomitant]
  8. RISPERIDONE [Concomitant]
  9. TAMULOSIN [Concomitant]
  10. TRAZODONE HCL [Concomitant]
  11. ACETAMINOPHEN [Concomitant]

REACTIONS (5)
  - CONTUSION [None]
  - DRUG INTERACTION [None]
  - HAEMORRHAGE [None]
  - INTERNATIONAL NORMALISED RATIO INCREASED [None]
  - MENTAL DISORDER [None]
